FAERS Safety Report 8560108-6 (Version None)
Quarter: 2012Q3

REPORT INFORMATION
  Report Type: 
  Country: None (occurrence: None)
  Receive Date: 20120802
  Receipt Date: 20120719
  Transmission Date: 20120928
  Serious: No
  Sender: FDA-Public Use
  Company Number: US-ASTRAZENECA-2012SE36545

PATIENT
  Age: 35 Year
  Sex: Female

DRUGS (5)
  1. SEROQUEL XR [Suspect]
     Route: 048
  2. SEROQUEL XR [Suspect]
     Indication: BIPOLAR DISORDER
     Route: 048
     Dates: start: 20090317, end: 20120630
  3. SEROQUEL XR [Suspect]
     Route: 048
     Dates: start: 20120621, end: 20120630
  4. LITHIUM CARBONATE [Concomitant]
  5. LAMICTAL [Concomitant]
     Dates: start: 20100421, end: 20120626

REACTIONS (9)
  - MATERNAL EXPOSURE DURING PREGNANCY [None]
  - HEADACHE [None]
  - DIARRHOEA [None]
  - FATIGUE [None]
  - VOMITING [None]
  - INSOMNIA [None]
  - SNEEZING [None]
  - NASAL CONGESTION [None]
  - DRUG WITHDRAWAL SYNDROME [None]
